FAERS Safety Report 21901890 (Version 1)
Quarter: 2023Q1

REPORT INFORMATION
  Report Type: Spontaneous
  Country: BR (occurrence: BR)
  Receive Date: 20230124
  Receipt Date: 20230124
  Transmission Date: 20230418
  Serious: Yes (Other)
  Sender: FDA-Public Use
  Company Number: BR-ABBOTT-2022A-1355626

PATIENT
  Age: 17 Year
  Sex: Female
  Weight: 40.6 kg

DRUGS (1)
  1. DEPAKOTE [Suspect]
     Active Substance: DIVALPROEX SODIUM
     Indication: Seizure prophylaxis
     Dosage: PATIENT WAS AROUND 8 YEARS OLD AND TOOK A LITTLE TIME (AROUND 3 DAYS)
     Route: 065

REACTIONS (4)
  - Seizure [Recovering/Resolving]
  - Anal incontinence [Unknown]
  - Ovarian cyst [Unknown]
  - Product use issue [Unknown]
